FAERS Safety Report 25055825 (Version 1)
Quarter: 2025Q1

REPORT INFORMATION
  Report Type: Spontaneous
  Country: FR (occurrence: FR)
  Receive Date: 20250309
  Receipt Date: 20250309
  Transmission Date: 20250409
  Serious: Yes (Hospitalization)
  Sender: DEXCEL
  Company Number: None

PATIENT
  Age: 54 Year
  Sex: Female
  Weight: 64.4 kg

DRUGS (22)
  1. CHLORHEXIDINE GLUCONATE [Suspect]
     Active Substance: CHLORHEXIDINE GLUCONATE
     Indication: Mammoplasty
     Route: 003
     Dates: start: 20240618, end: 20240618
  2. CHLORHEXIDINE GLUCONATE [Concomitant]
     Active Substance: CHLORHEXIDINE GLUCONATE
     Indication: Mammoplasty
     Route: 003
     Dates: start: 20240618, end: 20240628
  3. CEFAZOLIN SODIUM [Concomitant]
     Active Substance: CEFAZOLIN SODIUM
     Indication: Infection prophylaxis
     Route: 040
     Dates: start: 20240618, end: 20240618
  4. SEVOFLURANE [Concomitant]
     Active Substance: SEVOFLURANE
     Indication: General anaesthesia
     Route: 055
     Dates: start: 20240618, end: 20240618
  5. PROPOFOL [Concomitant]
     Active Substance: PROPOFOL
     Indication: General anaesthesia
     Route: 040
     Dates: start: 20240618, end: 20240618
  6. KETAMINE [Concomitant]
     Active Substance: KETAMINE
     Indication: General anaesthesia
     Route: 040
     Dates: start: 20240618, end: 20240618
  7. SUFENTANIL [Concomitant]
     Active Substance: SUFENTANIL
     Indication: General anaesthesia
     Route: 040
     Dates: start: 20240618, end: 20240618
  8. LIDOCAINE [Concomitant]
     Active Substance: LIDOCAINE
     Indication: General anaesthesia
     Route: 040
     Dates: start: 20240618, end: 20240618
  9. DROPERIDOL [Concomitant]
     Active Substance: DROPERIDOL
     Indication: Prophylaxis of nausea and vomiting
     Route: 040
     Dates: start: 20240618, end: 20240618
  10. DEXAMETHASONE [Concomitant]
     Active Substance: DEXAMETHASONE
     Indication: Mammoplasty
     Route: 040
     Dates: start: 20240618, end: 20240618
  11. NEFOPAM HYDROCHLORIDE [Concomitant]
     Active Substance: NEFOPAM HYDROCHLORIDE
     Indication: Procedural pain
     Route: 040
     Dates: start: 20240618, end: 20240618
  12. TRANEXAMIC ACID [Concomitant]
     Active Substance: TRANEXAMIC ACID
     Indication: Procedural haemorrhage
     Route: 040
     Dates: start: 20240618, end: 20240618
  13. KETOPROFEN [Concomitant]
     Active Substance: KETOPROFEN
     Indication: Procedural pain
     Route: 040
     Dates: start: 20240618, end: 20240619
  14. ACETAMINOPHEN [Concomitant]
     Active Substance: ACETAMINOPHEN
     Indication: Procedural pain
     Route: 040
     Dates: start: 20240618, end: 20240619
  15. DUPHALAC [Concomitant]
     Active Substance: LACTULOSE
     Indication: Constipation
     Route: 048
     Dates: start: 20240618, end: 20240619
  16. PANTOPRAZOLE [Concomitant]
     Active Substance: PANTOPRAZOLE
     Indication: Gastrooesophageal reflux prophylaxis
     Route: 048
     Dates: start: 20240618, end: 20240619
  17. OXYCODONE HYDROCHLORIDE [Concomitant]
     Active Substance: OXYCODONE HYDROCHLORIDE
     Indication: Procedural pain
     Route: 048
     Dates: start: 20240618, end: 20240619
  18. MORPHINE [Concomitant]
     Active Substance: MORPHINE
     Indication: Procedural pain
     Route: 048
     Dates: start: 20240618, end: 20240619
  19. ONDANSETRON [Concomitant]
     Active Substance: ONDANSETRON
     Indication: Prophylaxis of nausea and vomiting
     Route: 048
     Dates: start: 20240618, end: 20240619
  20. NALOXONE BASE [Concomitant]
     Indication: Toxicity to various agents
     Route: 040
     Dates: start: 20240618, end: 20240619
  21. DEVICE [Concomitant]
     Active Substance: DEVICE
     Indication: Mammoplasty
     Route: 050
     Dates: start: 20240618, end: 20240618
  22. DEVICE [Concomitant]
     Active Substance: DEVICE
     Indication: Suture insertion
     Route: 050
     Dates: start: 20240618, end: 20240618

REACTIONS (1)
  - Acute generalised exanthematous pustulosis [Recovered/Resolved]

NARRATIVE: CASE EVENT DATE: 20240618
